FAERS Safety Report 8340210-4 (Version None)
Quarter: 2012Q2

REPORT INFORMATION
  Report Type: 
  Country: None (occurrence: None)
  Receive Date: 20120507
  Receipt Date: 20120502
  Transmission Date: 20120825
  Serious: Yes (Other)
  Sender: FDA-Public Use
  Company Number: US-PFIZER INC-2012102801

PATIENT
  Sex: Male

DRUGS (2)
  1. NORVASC [Suspect]
  2. PROTONIX [Suspect]

REACTIONS (2)
  - HYPERTENSION [None]
  - NEPHROLITHIASIS [None]
